FAERS Safety Report 6016354-9 (Version None)
Quarter: 2008Q4

REPORT INFORMATION
  Report Type: 
  Country: None (occurrence: None)
  Receive Date: 20081222
  Receipt Date: 20081211
  Transmission Date: 20090506
  Serious: No
  Sender: FDA-Public Use
  Company Number: US-JNJFOC-20081203774

PATIENT
  Sex: Female
  Weight: 58.97 kg

DRUGS (7)
  1. DURAGESIC-100 [Suspect]
     Indication: MIGRAINE
     Route: 062
  2. FLEXERIL [Suspect]
     Indication: SLEEP DISORDER
     Dosage: AT BEDTIME
     Route: 048
  3. CYMBALTA [Concomitant]
     Indication: PAIN PROPHYLAXIS
     Route: 048
  4. AMITRIPTYLINE [Concomitant]
     Route: 048
  5. MORPHINE [Concomitant]
     Indication: BREAKTHROUGH PAIN
     Dosage: EVERY 7 HOURS
     Route: 048
  6. BREVICON [Concomitant]
     Indication: CONTRACEPTION
     Route: 048
  7. KLONOPIN [Concomitant]
     Indication: SLEEP DISORDER
     Dosage: 1.0 TO 3.0 MG AT BEDTIME
     Route: 048

REACTIONS (5)
  - DRUG DOSE OMISSION [None]
  - DRUG PRESCRIBING ERROR [None]
  - INAPPROPRIATE SCHEDULE OF DRUG ADMINISTRATION [None]
  - OFF LABEL USE [None]
  - WRONG TECHNIQUE IN DRUG USAGE PROCESS [None]
